FAERS Safety Report 7043088-4 (Version None)
Quarter: 2010Q4

REPORT INFORMATION
  Report Type: 
  Country: None (occurrence: None)
  Receive Date: 20101013
  Receipt Date: 20101005
  Transmission Date: 20110411
  Serious: Yes (Death, Other)
  Sender: FDA-Public Use
  Company Number: TR-GENZYME-POMP-1001135

PATIENT
  Sex: Male
  Weight: 7.4 kg

DRUGS (1)
  1. MYOZYME [Suspect]
     Indication: GLYCOGEN STORAGE DISEASE TYPE II
     Dosage: 20 MG/KG, Q2W
     Route: 042
     Dates: start: 20091121

REACTIONS (3)
  - INFLUENZA [None]
  - PYREXIA [None]
  - RESPIRATORY FAILURE [None]
